FAERS Safety Report 6048033-6 (Version None)
Quarter: 2009Q1

REPORT INFORMATION
  Report Type: 
  Country: None (occurrence: None)
  Receive Date: 20090123
  Receipt Date: 20090119
  Transmission Date: 20090719
  Serious: Yes (Death)
  Sender: FDA-Public Use
  Company Number: FR-BAYER-200911369GPV

PATIENT
  Age: 62 Year
  Sex: Female
  Weight: 74 kg

DRUGS (26)
  1. FLUDARA [Suspect]
     Indication: STEM CELL TRANSPLANT
     Dosage: UNIT DOSE: 50 MG
     Route: 042
     Dates: start: 20081115, end: 20081119
  2. CIFLOX [Suspect]
     Indication: KLEBSIELLA INFECTION
     Route: 065
     Dates: start: 20081101, end: 20081128
  3. TREOSULFAN [Suspect]
     Indication: STEM CELL TRANSPLANT
     Route: 042
     Dates: start: 20081115, end: 20081117
  4. THYMOGLOBULIN [Suspect]
     Indication: STEM CELL TRANSPLANT
     Dosage: UNIT DOSE: 5 MG/ML
     Route: 065
     Dates: start: 20081119, end: 20081120
  5. FASTURTEC [Suspect]
     Indication: PROPHYLAXIS
     Route: 042
     Dates: start: 20081114, end: 20081114
  6. CYCLOSPORINE [Suspect]
     Indication: PROPHYLAXIS AGAINST TRANSPLANT REJECTION
     Route: 065
     Dates: start: 20081122, end: 20081127
  7. METHOTREXATE [Suspect]
     Indication: PROPHYLAXIS AGAINST TRANSPLANT REJECTION
     Route: 065
     Dates: start: 20081122, end: 20081127
  8. TAZOCILLINE [Suspect]
     Indication: KLEBSIELLA INFECTION
     Route: 065
     Dates: start: 20081120, end: 20081128
  9. VFEND [Concomitant]
     Route: 065
     Dates: start: 20080701
  10. TERCIAN [Concomitant]
     Indication: DEPRESSION
     Route: 048
  11. ANAFRANIL [Concomitant]
     Indication: DEPRESSION
     Route: 065
  12. TEMESTA [Concomitant]
     Indication: DEPRESSION
     Route: 065
  13. NOCTRAN [Concomitant]
     Indication: DEPRESSION
     Route: 065
  14. TAREG [Concomitant]
     Indication: CARDIAC FAILURE
     Route: 065
  15. DETENSIEL [Concomitant]
     Indication: CARDIAC FAILURE
  16. LASILIX [Concomitant]
     Indication: CARDIAC FAILURE
  17. IMODIUM [Concomitant]
     Indication: DIARRHOEA
     Route: 065
     Dates: start: 20081101
  18. FLAGYL [Concomitant]
     Indication: DIARRHOEA
     Route: 065
     Dates: start: 20081101
  19. CORDARONE [Concomitant]
     Indication: ARRHYTHMIA
     Route: 065
  20. DIGOXIN [Concomitant]
     Indication: ARRHYTHMIA
     Route: 065
  21. ZOPHREN [Concomitant]
     Route: 065
     Dates: start: 20081101
  22. FORLAX [Concomitant]
     Route: 065
     Dates: start: 20081101
  23. VALIUM [Concomitant]
     Route: 065
     Dates: start: 20081101
  24. ZYLORIC [Concomitant]
     Route: 065
     Dates: start: 20081101
  25. TIENAM [Concomitant]
     Indication: KLEBSIELLA INFECTION
     Route: 065
     Dates: start: 20081128
  26. ZYVOXID [Concomitant]
     Indication: KLEBSIELLA INFECTION
     Route: 065
     Dates: start: 20081128

REACTIONS (1)
  - TOXIC EPIDERMAL NECROLYSIS [None]
